FAERS Safety Report 9968534 (Version 1)
Quarter: 2014Q1

REPORT INFORMATION
  Report Type: Report from Study
  Country: US (occurrence: US)
  Receive Date: 20140306
  Receipt Date: 20140306
  Transmission Date: 20141002
  Serious: No
  Sender: FDA-Public Use
  Company Number: US-ABBVIE-13P-163-1143181-00

PATIENT
  Age: 76 Year
  Sex: Male
  Weight: 89.89 kg

DRUGS (7)
  1. HUMIRA [Suspect]
     Indication: CROHN^S DISEASE
     Dates: start: 2007
  2. NEXIUM [Concomitant]
     Indication: GASTROOESOPHAGEAL REFLUX DISEASE
  3. SERTRALINE [Concomitant]
     Indication: DEPRESSION
  4. CELEBREX [Concomitant]
     Indication: BACK PAIN
  5. THYROXINE [Concomitant]
     Indication: HYPOTHYROIDISM
  6. SIMVASTATIN [Concomitant]
     Indication: BLOOD CHOLESTEROL INCREASED
  7. ALPRAZOLAM [Concomitant]
     Indication: ANXIETY

REACTIONS (2)
  - Spinal compression fracture [Not Recovered/Not Resolved]
  - Back pain [Not Recovered/Not Resolved]
